FAERS Safety Report 5589718-5 (Version None)
Quarter: 2008Q1

REPORT INFORMATION
  Report Type: 
  Country: None (occurrence: None)
  Receive Date: 20080114
  Receipt Date: 20071231
  Transmission Date: 20080703
  Serious: Yes (Hospitalization)
  Sender: FDA-Public Use
  Company Number: B0501692A

PATIENT
  Age: 72 Year
  Sex: Male

DRUGS (1)
  1. ZENTEL [Suspect]
     Dosage: 400MG PER DAY
     Route: 048
     Dates: start: 20070917, end: 20071108

REACTIONS (2)
  - BONE MARROW FAILURE [None]
  - PANCYTOPENIA [None]
